FAERS Safety Report 5735682-5 (Version None)
Quarter: 2008Q2

REPORT INFORMATION
  Report Type: 
  Country: None (occurrence: None)
  Receive Date: 20080512
  Receipt Date: 20080502
  Transmission Date: 20081010
  Serious: Yes (Congenital Anomaly, Other)
  Sender: FDA-Public Use
  Company Number: GB-ABBOTT-08P-167-0450313-00

PATIENT
  Sex: Male

DRUGS (1)
  1. VALPROIC ACID [Suspect]
     Indication: DRUG EXPOSURE DURING PREGNANCY
     Route: 064

REACTIONS (28)
  - ATRIAL SEPTAL DEFECT [None]
  - BLOOD GLUCOSE DECREASED [None]
  - BODY TEMPERATURE DECREASED [None]
  - CEREBRAL VENTRICLE DILATATION [None]
  - COLOBOMA [None]
  - CONGENITAL EYELID MALFORMATION [None]
  - CONGENITAL FOOT MALFORMATION [None]
  - CONGENITAL NOSE MALFORMATION [None]
  - DISTRACTIBILITY [None]
  - DISTURBANCE IN ATTENTION [None]
  - DRUG EXPOSURE DURING PREGNANCY [None]
  - DYSGRAPHIA [None]
  - DYSMORPHISM [None]
  - EXPRESSIVE LANGUAGE DISORDER [None]
  - FALL [None]
  - FINE MOTOR DELAY [None]
  - FOETAL ANTICONVULSANT SYNDROME [None]
  - FOOT DEFORMITY [None]
  - GRUNTING [None]
  - HYPOSPADIAS [None]
  - LIP DISORDER [None]
  - MEMORY IMPAIRMENT [None]
  - MUSCLE TWITCHING [None]
  - MYOPIA [None]
  - NERVOUS SYSTEM DISORDER [None]
  - PSYCHOMOTOR SKILLS IMPAIRED [None]
  - SKULL MALFORMATION [None]
  - SPEECH DISORDER DEVELOPMENTAL [None]
